FAERS Safety Report 5169106-6 (Version None)
Quarter: 2006Q4

REPORT INFORMATION
  Report Type: 
  Country: None (occurrence: None)
  Receive Date: 20061211
  Receipt Date: 20061201
  Transmission Date: 20070319
  Serious: Yes (Other)
  Sender: FDA-Public Use
  Company Number: BR-ROCHE-473882

PATIENT
  Age: 35 Year
  Sex: Female
  Weight: 68 kg

DRUGS (4)
  1. RIVOTRIL [Suspect]
     Indication: PANIC DISORDER
     Route: 048
     Dates: start: 20000615, end: 20060315
  2. RIVOTRIL [Suspect]
     Dosage: ORAL SOLUTION: 2.5 MG/ML
     Route: 048
     Dates: start: 20060515
  3. TOFRANIL [Concomitant]
     Route: 048
  4. DAFORIN [Concomitant]
     Indication: ANXIETY
     Route: 048
     Dates: start: 20060315, end: 20060515

REACTIONS (3)
  - DEEP VEIN THROMBOSIS [None]
  - STRESS [None]
  - WEIGHT DECREASED [None]
